FAERS Safety Report 11552508 (Version 1)
Quarter: 2015Q3

REPORT INFORMATION
  Report Type: Spontaneous
  Country: JP (occurrence: JP)
  Receive Date: 20150925
  Receipt Date: 20150925
  Transmission Date: 20151125
  Serious: Yes (Hospitalization)
  Sender: FDA-Public Use
  Company Number: JP-BRISTOL-MYERS SQUIBB COMPANY-BMS-2015-065501

PATIENT
  Age: 62 Year
  Sex: Female
  Weight: 46.1 kg

DRUGS (2)
  1. LINEZOLID. [Interacting]
     Active Substance: LINEZOLID
     Indication: ENDOCARDITIS
     Dosage: 600 MG, Q12H
     Route: 042
  2. WARFARIN SODIUM. [Suspect]
     Active Substance: WARFARIN SODIUM
     Indication: EMBOLISM
     Route: 065

REACTIONS (2)
  - International normalised ratio increased [Unknown]
  - Drug interaction [Unknown]
